FAERS Safety Report 14663416 (Version 3)
Quarter: 2018Q2

REPORT INFORMATION
  Report Type: Spontaneous
  Country: US (occurrence: US)
  Receive Date: 20180321
  Receipt Date: 20180418
  Transmission Date: 20180711
  Serious: No
  Sender: FDA-Public Use
  Company Number: US-PFIZER INC-2018112237

PATIENT
  Age: 73 Year
  Sex: Female
  Weight: 54.88 kg

DRUGS (3)
  1. IBRANCE [Suspect]
     Active Substance: PALBOCICLIB
     Indication: BREAST CANCER METASTATIC
     Dosage: 125 MG, CYCLIC (1/CAPSULE/DAILY 1-21/DAYS)
     Route: 048
     Dates: start: 20180301
  2. IBRANCE [Suspect]
     Active Substance: PALBOCICLIB
     Dosage: 125 MG, CYCLIC(D 1-21Q28 DAYS)
     Route: 048
     Dates: start: 20180305
  3. IBRANCE [Suspect]
     Active Substance: PALBOCICLIB
     Indication: BREAST CANCER FEMALE
     Dosage: 125 MG, CYCLIC (1 CAPSULE/DAILY 1-21/DAYS)
     Route: 048
     Dates: start: 20180228

REACTIONS (4)
  - Insomnia [Unknown]
  - Nasopharyngitis [Unknown]
  - Back pain [Unknown]
  - Asthenia [Unknown]

NARRATIVE: CASE EVENT DATE: 2018
